FAERS Safety Report 9743854 (Version 1)
Quarter: 2013Q4

REPORT INFORMATION
  Report Type: Spontaneous
  Country: US (occurrence: US)
  Receive Date: 20131210
  Receipt Date: 20131210
  Transmission Date: 20140711
  Serious: No
  Sender: FDA-Public Use
  Company Number: US-BIOGENIDEC-2013BI098075

PATIENT
  Age: 56 Year
  Sex: Male

DRUGS (16)
  1. TECFIDERA [Suspect]
     Indication: MULTIPLE SCLEROSIS
     Route: 048
     Dates: start: 20131001
  2. WELLBUTRIN [Concomitant]
  3. LIPITOR [Concomitant]
  4. FLOMAX [Concomitant]
  5. BACLOFEN [Concomitant]
  6. LEVADOPA [Concomitant]
  7. LORAZEPAM [Concomitant]
  8. TRILEPTAL [Concomitant]
  9. AVODART [Concomitant]
  10. ASPIRIN [Concomitant]
  11. VITAMIN C [Concomitant]
  12. VITAMIN E [Concomitant]
  13. VITAMIN B12 [Concomitant]
  14. CAL-MAG-ZINC [Concomitant]
  15. OXCARBAZEPINE [Concomitant]
  16. STOOL SOFTENERS [Concomitant]

REACTIONS (3)
  - Flushing [Recovered/Resolved]
  - Rash [Recovered/Resolved]
  - Pruritus [Recovered/Resolved]
